FAERS Safety Report 11115747 (Version 1)
Quarter: 2015Q2

REPORT INFORMATION
  Report Type: Spontaneous
  Country: US (occurrence: None)
  Receive Date: 20150514
  Receipt Date: 20150514
  Transmission Date: 20150821
  Serious: No
  Sender: FDA-Public Use
  Company Number: None

PATIENT
  Age: 63 Year
  Sex: Male

DRUGS (1)
  1. TEMOZOLOMIDE. [Suspect]
     Active Substance: TEMOZOLOMIDE
     Dosage: STRENGTH: 100
     Dates: start: 20150423

REACTIONS (5)
  - Weight decreased [None]
  - Abdominal pain upper [None]
  - Dizziness [None]
  - Constipation [None]
  - Alopecia [None]

NARRATIVE: CASE EVENT DATE: 20150423
